FAERS Safety Report 14767121 (Version 4)
Quarter: 2018Q2

REPORT INFORMATION
  Report Type: Report from Study
  Country: US (occurrence: US)
  Receive Date: 20180417
  Receipt Date: 20180510
  Transmission Date: 20180711
  Serious: Yes (Hospitalization, Other)
  Sender: FDA-Public Use
  Company Number: US-GILEAD-2018-0332729

PATIENT
  Age: 69 Year
  Sex: Female

DRUGS (3)
  1. AMBRISENTAN [Suspect]
     Active Substance: AMBRISENTAN
     Indication: PRODUCT USED FOR UNKNOWN INDICATION
     Dosage: 10 MG, QD
     Route: 065
     Dates: start: 20160805
  2. ADCIRCA [Concomitant]
     Active Substance: TADALAFIL
  3. OXYGEN. [Concomitant]
     Active Substance: OXYGEN

REACTIONS (7)
  - Abdominal pain [Unknown]
  - Escherichia infection [Unknown]
  - Oxygen saturation decreased [Not Recovered/Not Resolved]
  - Diastolic hypotension [Not Recovered/Not Resolved]
  - Appendicitis [Unknown]
  - Diverticulum [Unknown]
  - Urinary tract infection [Unknown]
